FAERS Safety Report 9472340 (Version 3)
Quarter: 2013Q3

REPORT INFORMATION
  Report Type: Spontaneous
  Country: FR (occurrence: FR)
  Receive Date: 20130823
  Receipt Date: 20130923
  Transmission Date: 20140515
  Serious: Yes (Hospitalization)
  Sender: FDA-Public Use
  Company Number: FR-ROCHE-1265019

PATIENT
  Age: 60 Year
  Sex: Female
  Weight: 60 kg

DRUGS (1)
  1. ZELBORAF [Suspect]
     Indication: MALIGNANT MELANOMA
     Dosage: 240 MG
     Route: 048
     Dates: start: 20130729

REACTIONS (3)
  - Thermal burn [Recovering/Resolving]
  - Burning sensation [Unknown]
  - Generalised erythema [Unknown]
